FAERS Safety Report 8829731 (Version 3)
Quarter: 2012Q4

REPORT INFORMATION
  Report Type: 
  Country: JP (occurrence: JP)
  Receive Date: 20121008
  Receipt Date: 20121127
  Transmission Date: 20130627
  Serious: Yes (Hospitalization, Other)
  Sender: FDA-Public Use
  Company Number: JP-JNJFOC-20121003726

PATIENT
  Age: 7 Year
  Sex: Male

DRUGS (4)
  1. ZYRTEC [Suspect]
     Route: 048
  2. ZYRTEC [Suspect]
     Indication: ASTHMA
     Route: 048
     Dates: start: 20120517, end: 20120712
  3. ONON [Concomitant]
     Indication: ASTHMA
     Route: 048
     Dates: start: 20120517
  4. FLUTICASONE [Concomitant]
     Indication: RHINITIS ALLERGIC
     Route: 045
     Dates: start: 20120517

REACTIONS (3)
  - Febrile convulsion [Recovered/Resolved]
  - Streptococcal infection [Recovered/Resolved]
  - Off label use [Unknown]
